FAERS Safety Report 9380594 (Version 1)
Quarter: 2013Q3

REPORT INFORMATION
  Report Type: Report from Study
  Country: US (occurrence: US)
  Receive Date: 20130702
  Receipt Date: 20130702
  Transmission Date: 20140515
  Serious: Yes (Death, Hospitalization)
  Sender: FDA-Public Use
  Company Number: US-PFIZER INC-HQ1356325SEP2000

PATIENT
  Age: 78 Year
  Sex: Female
  Weight: 68 kg

DRUGS (1)
  1. TEMSIROLIMUS [Suspect]
     Indication: RENAL CELL CARCINOMA
     Dosage: 75 MG, WEEKLY
     Route: 042
     Dates: start: 20000809, end: 20000830

REACTIONS (4)
  - Hyperglycaemia [Recovered/Resolved]
  - Mental impairment [Recovered/Resolved]
  - Convulsion [Recovered/Resolved]
  - Respiratory failure [Fatal]
